FAERS Safety Report 10536865 (Version 1)
Quarter: 2014Q4

REPORT INFORMATION
  Report Type: Spontaneous
  Country: US (occurrence: US)
  Receive Date: 20141022
  Receipt Date: 20141022
  Transmission Date: 20150529
  Serious: No
  Sender: FDA-Public Use
  Company Number: US-RECKITT BENCKISER PHARMACEUTICAL, INC-RB-70623-2014

PATIENT
  Age: 34 Year
  Sex: Female

DRUGS (5)
  1. SUBOXONE [Suspect]
     Active Substance: BUPRENORPHINE HYDROCHLORIDE\NALOXONE HYDROCHLORIDE
     Indication: DRUG DEPENDENCE
     Dosage: 8 MG, BID
     Route: 060
  2. UNSPECIFIED BLOOD PRESSURE MEDICATION [Concomitant]
     Indication: HYPERTENSION
     Dosage: UNK, QD
     Route: 048
  3. SUBOXONE [Suspect]
     Active Substance: BUPRENORPHINE HYDROCHLORIDE\NALOXONE HYDROCHLORIDE
     Dosage: INSTRUCTED TO MEDICALLY TAPER HENCE CUTTING THE FILM
     Route: 060
  4. SUBOXONE [Suspect]
     Active Substance: BUPRENORPHINE HYDROCHLORIDE\NALOXONE HYDROCHLORIDE
     Dosage: CUTTING THE FILM AND TAKING VARIOUS DOSES
     Route: 060
  5. UNSPECIFIED BIRTH CONTROL PILL [Concomitant]
     Active Substance: UNSPECIFIED INGREDIENT
     Indication: CONTRACEPTION
     Dosage: UNK, QD
     Route: 048

REACTIONS (10)
  - Headache [Recovered/Resolved]
  - Insomnia [Recovered/Resolved]
  - Anxiety [Recovered/Resolved]
  - Wrong technique in drug usage process [Not Recovered/Not Resolved]
  - Hyperhidrosis [Recovered/Resolved]
  - Irritability [Recovered/Resolved]
  - Activities of daily living impaired [Unknown]
  - Substance abuse [Not Recovered/Not Resolved]
  - Hypertension [Recovered/Resolved]
  - Constipation [Recovered/Resolved]
